FAERS Safety Report 13321394 (Version 1)
Quarter: 2017Q1

REPORT INFORMATION
  Report Type: Spontaneous
  Country: US (occurrence: US)
  Receive Date: 20170310
  Receipt Date: 20170310
  Transmission Date: 20170428
  Serious: Yes (Other)
  Sender: FDA-Public Use
  Company Number: None

PATIENT
  Age: 29 Year
  Sex: Male
  Weight: 85.5 kg

DRUGS (10)
  1. JUNE GRASS [Concomitant]
  2. TIMOTHY GRASS [Concomitant]
  3. DILUENT (NORMAL SALINE, HUMAN SERUM ALBUMIN, PHENOL) [Concomitant]
  4. ELM [Concomitant]
     Active Substance: ELM
  5. OAK [Concomitant]
  6. SHORT RAGWEED [Concomitant]
     Active Substance: AMBROSIA ARTEMISIIFOLIA POLLEN
  7. MAPLE POLLEN MIXTURE [Suspect]
     Active Substance: ACER RUBRUM POLLEN\ACER SACCHARINUM POLLEN\ACER SACCHARUM POLLEN
     Indication: RHINITIS ALLERGIC
     Dosage: ?          OTHER FREQUENCY:MONTHLY;?
     Route: 023
     Dates: start: 20170222, end: 20170308
  8. ASPEN [Concomitant]
     Active Substance: POPULUS TREMULOIDES POLLEN
  9. ORCHARD GRASS [Concomitant]
  10. BIRCH [Concomitant]
     Active Substance: BETULA NIGRA POLLEN

REACTIONS (3)
  - Feeling hot [None]
  - Pruritus generalised [None]
  - Urticaria [None]

NARRATIVE: CASE EVENT DATE: 20170228
